FAERS Safety Report 11511784 (Version 3)
Quarter: 2015Q4

REPORT INFORMATION
  Report Type: Report from Study
  Country: US (occurrence: US)
  Receive Date: 20150915
  Receipt Date: 20151110
  Transmission Date: 20160304
  Serious: Yes (Other)
  Sender: FDA-Public Use
  Company Number: US-AMGEN-USASL2015093719

PATIENT
  Sex: Female
  Weight: 86.17 kg

DRUGS (1)
  1. ENBREL [Suspect]
     Active Substance: ETANERCEPT
     Indication: RHEUMATOID ARTHRITIS
     Dosage: 50 MG, QWK
     Route: 065

REACTIONS (8)
  - Sinusitis [Recovered/Resolved]
  - Rheumatoid arthritis [Recovering/Resolving]
  - Infection [Unknown]
  - Malaise [Unknown]
  - Upper respiratory tract infection [Recovered/Resolved]
  - Bronchitis [Recovered/Resolved]
  - Arthralgia [Unknown]
  - Peripheral swelling [Recovering/Resolving]
